FAERS Safety Report 12237828 (Version 3)
Quarter: 2016Q2

REPORT INFORMATION
  Report Type: Other
  Country: US (occurrence: US)
  Receive Date: 20160405
  Receipt Date: 20160620
  Transmission Date: 20160815
  Serious: Yes (Other)
  Sender: FDA-Public Use
  Company Number: US-ACORDA-ACO_122606_2016

PATIENT
  Sex: Female

DRUGS (1)
  1. AMPYRA [Suspect]
     Active Substance: DALFAMPRIDINE
     Indication: GAIT DISTURBANCE
     Dosage: 10 MG, BID
     Route: 048
     Dates: start: 20151009, end: 20160219

REACTIONS (4)
  - Contraindicated drug administered [Unknown]
  - Dizziness [Recovered/Resolved]
  - Head discomfort [Recovered/Resolved]
  - Seizure [Recovered/Resolved]
